FAERS Safety Report 7997481-3 (Version None)
Quarter: 2011Q4

REPORT INFORMATION
  Report Type: 
  Country: None (occurrence: None)
  Receive Date: 20111221
  Receipt Date: 20111221
  Transmission Date: 20120403
  Serious: Yes (Other)
  Sender: FDA-Public Use
  Company Number: None

PATIENT
  Age: 61 Year
  Sex: Female
  Weight: 56.245 kg

DRUGS (1)
  1. LEVOFLOXACIN [Suspect]
     Indication: BRONCHITIS
     Dosage: 750 PER DAY
     Route: 048
     Dates: start: 20111006, end: 20111011

REACTIONS (3)
  - INFECTIVE TENOSYNOVITIS [None]
  - TENDON RUPTURE [None]
  - NECROSIS [None]
